FAERS Safety Report 12517433 (Version 3)
Quarter: 2016Q3

REPORT INFORMATION
  Report Type: Spontaneous
  Country: TW (occurrence: TW)
  Receive Date: 20160630
  Receipt Date: 20160803
  Transmission Date: 20161109
  Serious: Yes (Other)
  Sender: FDA-Public Use
  Company Number: TW-SUN PHARMACEUTICAL INDUSTRIES LTD-2016R1-119294

PATIENT
  Age: 50 Year
  Sex: Female

DRUGS (3)
  1. DOCETAXEL. [Suspect]
     Active Substance: DOCETAXEL
     Indication: NASOPHARYNGEAL CANCER RECURRENT
     Dosage: 60 MG/M2 CYCLICAL, SINGLE 1-HR INFUSION
     Route: 065
  2. CISPLATIN. [Suspect]
     Active Substance: CISPLATIN
     Indication: NASOPHARYNGEAL CANCER RECURRENT
     Dosage: 80 MG/M2, CYCLICAL, SINGLE 6-HR INFUSION, ON DAY 1: TPF REGIMEN, PF REGIMEN
     Route: 065
  3. FLUOROURACIL. [Suspect]
     Active Substance: FLUOROURACIL
     Indication: NASOPHARYNGEAL CANCER RECURRENT
     Dosage: 800 MG/M2 CYCLICAL CONTINUOUS PUMP, FROM DAY 1 TO DAY 4: TPF REGIMEN, PF REGIMEN
     Route: 065

REACTIONS (3)
  - Hyponatraemia [Recovering/Resolving]
  - Febrile neutropenia [Recovering/Resolving]
  - Osmotic demyelination syndrome [Recovering/Resolving]

NARRATIVE: CASE EVENT DATE: 20140605
